FAERS Safety Report 9186666 (Version 1)
Quarter: 2013Q1

REPORT INFORMATION
  Report Type: Spontaneous
  Country: US (occurrence: US)
  Receive Date: 20130325
  Receipt Date: 20130325
  Transmission Date: 20140127
  Serious: No
  Sender: FDA-Public Use
  Company Number: US-GLAXOSMITHKLINE-A0965713A

PATIENT
  Age: 85 Year
  Sex: Male

DRUGS (4)
  1. RYTHMOL SR [Suspect]
     Indication: ARRHYTHMIA
     Dosage: 225MG TWICE PER DAY
     Route: 048
     Dates: start: 201112
  2. ADVAIR [Concomitant]
  3. AMOXICILLIN [Concomitant]
  4. ALBUTEROL INHALER [Concomitant]

REACTIONS (3)
  - Arrhythmia [Not Recovered/Not Resolved]
  - Drug ineffective [Unknown]
  - Product quality issue [Unknown]
